FAERS Safety Report 18281019 (Version 2)
Quarter: 2020Q4

REPORT INFORMATION
  Report Type: Other
  Country: US (occurrence: US)
  Receive Date: 20200918
  Receipt Date: 20201211
  Transmission Date: 20210113
  Serious: Yes (Life-Threatening, Hospitalization, Other)
  Sender: FDA-Public Use
  Company Number: US-ROCHE-2674073

PATIENT
  Age: 15 Year
  Sex: Male
  Weight: 31.7 kg

DRUGS (19)
  1. RISDIPLAM. [Suspect]
     Active Substance: RISDIPLAM
     Indication: MUSCLE ATROPHY
     Dosage: ON 09/JUN/2020, HE RECEIVED MOST RECENT DOSE OF THERAPY AND LAST STUDY DRUG ADMIN PRIOR TO AE
     Route: 048
     Dates: start: 20200726
  2. LABETALOL [Concomitant]
     Active Substance: LABETALOL\LABETALOL HYDROCHLORIDE
     Indication: HYPERTENSION
  3. ROBINUL [Concomitant]
     Active Substance: GLYCOPYRROLATE
  4. MIRALAX [Concomitant]
     Active Substance: POLYETHYLENE GLYCOL 3350
     Indication: CONSTIPATION
     Dosage: 1.00 OTHER
  5. NORCO [Concomitant]
     Active Substance: ACETAMINOPHEN\HYDROCODONE BITARTRATE
     Indication: PAIN
  6. XOPENEX [Concomitant]
     Active Substance: LEVALBUTEROL HYDROCHLORIDE
     Indication: BRONCHOSPASM
     Dosage: 45.00 OTHER
  7. D MANNOSE [Concomitant]
  8. CEFDINIR. [Concomitant]
     Active Substance: CEFDINIR
     Indication: SINUSITIS
     Dates: start: 20200727, end: 20200730
  9. ROCEPHIN [Concomitant]
     Active Substance: CEFTRIAXONE SODIUM
     Indication: SINUSITIS
     Route: 030
     Dates: start: 20200804, end: 20200804
  10. CLONIDINE. [Concomitant]
     Active Substance: CLONIDINE
     Indication: HYPERTENSION
     Dosage: TOTAL DAILY DOSE: 0.50
  11. AZITHROMYCIN ANHYDROUS. [Concomitant]
     Active Substance: AZITHROMYCIN ANHYDROUS
     Dates: start: 20200816, end: 20200820
  12. ENALAPRIL [Concomitant]
     Active Substance: ENALAPRIL
     Indication: HYPERTENSION
     Dates: start: 20200429
  13. AZITHROMYCIN ANHYDROUS. [Concomitant]
     Active Substance: AZITHROMYCIN ANHYDROUS
     Indication: SINUSITIS
     Dates: start: 20200731, end: 20200804
  14. K PHOS NEUTRAL [Concomitant]
     Active Substance: POTASSIUM PHOSPHATE, MONOBASIC\SODIUM PHOSPHATE, DIBASIC, ANHYDROUS\SODIUM PHOSPHATE, MONOBASIC, MONOHYDRATE
     Indication: HYPOPHOSPHATAEMIA
     Dosage: 2 OTHER
  15. FLORAJEN [Concomitant]
     Active Substance: PROBIOTICS NOS
     Dosage: 1 OTHER
  16. BENADRYL ALLERGY [Concomitant]
     Active Substance: DIPHENHYDRAMINE HYDROCHLORIDE
     Indication: HYPERSENSITIVITY
  17. AUGMENTIN [Concomitant]
     Active Substance: AMOXICILLIN\CLAVULANATE POTASSIUM
     Indication: SINUSITIS
     Dates: start: 20200726, end: 20200727
  18. ROCEPHIN [Concomitant]
     Active Substance: CEFTRIAXONE SODIUM
     Route: 030
     Dates: start: 20200821, end: 20200821
  19. SUDAFED [Concomitant]
     Active Substance: PSEUDOEPHEDRINE HYDROCHLORIDE

REACTIONS (7)
  - Inappropriate antidiuretic hormone secretion [Not Recovered/Not Resolved]
  - Status epilepticus [Not Recovered/Not Resolved]
  - Inappropriate antidiuretic hormone secretion [Unknown]
  - Autonomic neuropathy [Unknown]
  - Hyponatraemic seizure [Recovered/Resolved]
  - Blood sodium abnormal [Unknown]
  - Hyponatraemia [Recovered/Resolved]

NARRATIVE: CASE EVENT DATE: 20200906
